FAERS Safety Report 11044401 (Version 1)
Quarter: 2015Q2

REPORT INFORMATION
  Report Type: Spontaneous
  Country: US (occurrence: None)
  Receive Date: 20150416
  Receipt Date: 20150416
  Transmission Date: 20150821
  Serious: No
  Sender: FDA-Public Use
  Company Number: None

PATIENT
  Age: 61 Year
  Sex: Male
  Weight: 80.4 kg

DRUGS (3)
  1. IFOSFAMIDE. [Suspect]
     Active Substance: IFOSFAMIDE
     Route: 042
     Dates: start: 20150225, end: 20150225
  2. IFOSFAMIDE. [Suspect]
     Active Substance: IFOSFAMIDE
     Indication: LYMPHOMA TRANSFORMATION
     Route: 042
     Dates: start: 20150225, end: 20150225
  3. IFOSFAMIDE. [Suspect]
     Active Substance: IFOSFAMIDE
     Indication: LYMPHOMA TRANSFORMATION
     Route: 042
     Dates: start: 20150225, end: 20150225

REACTIONS (4)
  - Mental impairment [None]
  - Neurotoxicity [None]
  - Aphasia [None]
  - Thinking abnormal [None]

NARRATIVE: CASE EVENT DATE: 20150225
